FAERS Safety Report 7378421-7 (Version None)
Quarter: 2011Q1

REPORT INFORMATION
  Report Type: 
  Country: None (occurrence: None)
  Receive Date: 20110328
  Receipt Date: 20110321
  Transmission Date: 20110831
  Serious: Yes (Hospitalization)
  Sender: FDA-Public Use
  Company Number: US-MERCK-1102USA02546

PATIENT
  Age: 66 Year
  Sex: Female

DRUGS (9)
  1. NEURONTIN [Suspect]
     Route: 065
  2. JANUVIA [Suspect]
     Indication: DIABETES MELLITUS
     Route: 048
     Dates: start: 20060101
  3. DILTIAZEM HYDROCHLORIDE [Suspect]
     Route: 065
  4. TRICOR [Suspect]
     Route: 065
  5. GLIMEPIRIDE [Suspect]
     Route: 065
  6. NEXIUM [Suspect]
     Route: 065
  7. METFORMIN [Suspect]
     Route: 065
  8. PLAVIX [Suspect]
     Route: 065
  9. BENAZEPRIL HYDROCHLORIDE [Suspect]
     Route: 065

REACTIONS (7)
  - NAUSEA [None]
  - FLATULENCE [None]
  - ABDOMINAL PAIN UPPER [None]
  - DYSPHAGIA [None]
  - BACK PAIN [None]
  - LIP SWELLING [None]
  - SWELLING FACE [None]
